FAERS Safety Report 4751476-1 (Version None)
Quarter: 2005Q3

REPORT INFORMATION
  Report Type: 
  Country: None (occurrence: None)
  Receive Date: 20050824
  Receipt Date: 20050817
  Transmission Date: 20060218
  Serious: Yes (Other)
  Sender: FDA-Public Use
  Company Number: PHNR2005AU01253

PATIENT
  Age: 53 Year
  Sex: Female

DRUGS (3)
  1. ZOMETA [Suspect]
     Indication: METASTASES TO BONE
     Dates: start: 20031115
  2. TAXOTERE [Concomitant]
     Indication: BREAST CANCER METASTATIC
     Dates: start: 20031215
  3. HEPARIN SODIUM [Concomitant]
     Dates: start: 20031215

REACTIONS (7)
  - ASEPTIC NECROSIS BONE [None]
  - BONE DEBRIDEMENT [None]
  - BONE DISORDER [None]
  - BONE SWELLING [None]
  - ENDODONTIC PROCEDURE [None]
  - PAIN [None]
  - TOOTH ABSCESS [None]
